FAERS Safety Report 20407007 (Version 2)
Quarter: 2022Q1

REPORT INFORMATION
  Report Type: Report from Study
  Country: FR (occurrence: None)
  Receive Date: 20220131
  Receipt Date: 20220211
  Transmission Date: 20220423
  Serious: Yes (Hospitalization)
  Sender: FDA-Public Use
  Company Number: FR-ROCHE-2996494

PATIENT
  Age: 68 Year
  Sex: Female

DRUGS (2)
  1. ATEZOLIZUMAB [Suspect]
     Active Substance: ATEZOLIZUMAB
     Indication: Non-small cell lung cancer metastatic
     Dosage: ON 20/DEC/2021, THE PATIENT RECEIVED MOST RECENT DOSE OF ATEZOLIZUMAB 840 MG PRIOR TO THE EVENT.
     Route: 041
     Dates: start: 20211220
  2. EVOLOCUMAB [Suspect]
     Active Substance: EVOLOCUMAB
     Indication: Non-small cell lung cancer metastatic
     Dosage: DOSE OF STUDY DRUG FIRST ADMINISTERED: 140 MG/ML?ON 20/DEC/2021, THE PATIENT RECEIVED MOST DOSE OF E
     Route: 058
     Dates: start: 20211220

REACTIONS (1)
  - Large intestine infection [Not Recovered/Not Resolved]

NARRATIVE: CASE EVENT DATE: 20220104
